FAERS Safety Report 17032416 (Version 2)
Quarter: 2020Q1

REPORT INFORMATION
  Report Type: Spontaneous
  Country: US (occurrence: US)
  Receive Date: 20191114
  Receipt Date: 20200128
  Transmission Date: 20200409
  Serious: Yes (Hospitalization, Other)
  Sender: FDA-Public Use
  Company Number: US-COOPERSURGICAL, INC.-US-2019CPS003442

PATIENT
  Age: 32 Year
  Sex: Female
  Weight: 49.43 kg

DRUGS (1)
  1. PARAGARD T 380A [Suspect]
     Active Substance: COPPER
     Indication: CONTRACEPTION
     Dosage: UNK
     Route: 015
     Dates: start: 20190410, end: 20190923

REACTIONS (7)
  - Menorrhagia [Unknown]
  - Palpitations [Recovering/Resolving]
  - Anxiety [Recovering/Resolving]
  - Device toxicity [Unknown]
  - Dizziness [Recovering/Resolving]
  - Alopecia [Not Recovered/Not Resolved]
  - Menstruation irregular [Recovered/Resolved]

NARRATIVE: CASE EVENT DATE: 2019
